FAERS Safety Report 18962458 (Version 1)
Quarter: 2021Q1

REPORT INFORMATION
  Report Type: Spontaneous
  Country: US (occurrence: US)
  Receive Date: 20210303
  Receipt Date: 20210303
  Transmission Date: 20210420
  Serious: Yes (Life-Threatening, Other)
  Sender: FDA-Public Use
  Company Number: US-AMGEN-USASP2021030989

PATIENT
  Age: 64 Year
  Sex: Female

DRUGS (7)
  1. METHYLPREDNISOLONE. [Concomitant]
     Active Substance: METHYLPREDNISOLONE
     Indication: PROPHYLAXIS
     Dosage: 1 MILLIGRAM/KILOGRAM, QD
     Route: 042
  2. ARA?C [Concomitant]
     Active Substance: CYTARABINE
     Indication: ACUTE MYELOID LEUKAEMIA REFRACTORY
     Dosage: 1 GRAM PER SQUARE METRE, QD
     Route: 042
  3. FILGRASTIM [Suspect]
     Active Substance: FILGRASTIM
     Indication: ALLOGENIC STEM CELL TRANSPLANTATION
     Dosage: 5 MICROGRAM/KILOGRAM, QD
     Route: 065
  4. CYCLOSPORINE. [Concomitant]
     Active Substance: CYCLOSPORINE
     Indication: PROPHYLAXIS
     Dosage: 3 MILLIGRAM/KILOGRAM, QD
     Route: 042
  5. NORFLOXACIN [Concomitant]
     Active Substance: NORFLOXACIN
     Indication: PROPHYLAXIS
     Dosage: 400 MILLIGRAM, BID
     Route: 048
  6. FLUCONAZOLE. [Concomitant]
     Active Substance: FLUCONAZOLE
     Indication: PROPHYLAXIS
     Dosage: 200 MILLIGRAM
  7. 2?CDA [Concomitant]
     Active Substance: CLADRIBINE
     Indication: ACUTE MYELOID LEUKAEMIA REFRACTORY
     Dosage: 12 MILLIGRAM/SQ. METER, QD
     Route: 042

REACTIONS (1)
  - Cardiotoxicity [Unknown]
